FAERS Safety Report 14771951 (Version 4)
Quarter: 2020Q4

REPORT INFORMATION
  Report Type: Report from Study
  Country: US (occurrence: US)
  Receive Date: 20180417
  Receipt Date: 20201207
  Transmission Date: 20210113
  Serious: Yes (Other)
  Sender: FDA-Public Use
  Company Number: US-BIOGEN-2018BI00556018

PATIENT
  Sex: Female

DRUGS (2)
  1. TYSABRI [Suspect]
     Active Substance: NATALIZUMAB
     Indication: MULTIPLE SCLEROSIS
     Dosage: INFUSED OVER 1 HOUR
     Route: 050
  2. TYSABRI [Suspect]
     Active Substance: NATALIZUMAB
     Route: 065

REACTIONS (2)
  - Neoplasm malignant [Unknown]
  - Breast cancer female [Unknown]
